FAERS Safety Report 7814295-5 (Version None)
Quarter: 2011Q4

REPORT INFORMATION
  Report Type: 
  Country: None (occurrence: None)
  Receive Date: 20111014
  Receipt Date: 20111003
  Transmission Date: 20120403
  Serious: Yes (Hospitalization)
  Sender: FDA-Public Use
  Company Number: CH-SANOFI-AVENTIS-2011SA064940

PATIENT
  Age: 64 Year
  Sex: Male

DRUGS (4)
  1. IRBESARTAN AND HYDROCHLOROTHIAZIDE [Concomitant]
  2. LEUPROLIDE ACETATE [Suspect]
     Dosage: EVERY THREE MONTHS
     Route: 065
  3. LEUPROLIDE ACETATE [Suspect]
     Route: 065
  4. TAMSULOSIN HYDROCHLORIDE [Concomitant]
     Indication: URINE FLOW DECREASED

REACTIONS (13)
  - MUSCULAR WEAKNESS [None]
  - MOBILITY DECREASED [None]
  - OLIGURIA [None]
  - MYALGIA [None]
  - OEDEMA PERIPHERAL [None]
  - BLOOD CREATINE PHOSPHOKINASE INCREASED [None]
  - MYOPATHY [None]
  - LYMPHOCYTE COUNT INCREASED [None]
  - RHABDOMYOLYSIS [None]
  - MUSCLE NECROSIS [None]
  - MOVEMENT DISORDER [None]
  - RENAL FAILURE [None]
  - BLOOD CREATININE INCREASED [None]
